FAERS Safety Report 12204558 (Version 1)
Quarter: 2016Q1

REPORT INFORMATION
  Report Type: Spontaneous
  Country: US (occurrence: None)
  Receive Date: 20160322
  Receipt Date: 20160322
  Transmission Date: 20160526
  Serious: Yes (Other)
  Sender: FDA-Public Use
  Company Number: None

PATIENT
  Age: 68 Year
  Sex: Female

DRUGS (2)
  1. MORPHINE IR 2MG [Suspect]
     Active Substance: MORPHINE
     Indication: PAIN
  2. HYDROMORPHONE 1MG [Suspect]
     Active Substance: HYDROMORPHONE
     Indication: PAIN

REACTIONS (1)
  - Unresponsive to stimuli [None]

NARRATIVE: CASE EVENT DATE: 20150819
